FAERS Safety Report 7469402-3 (Version None)
Quarter: 2011Q2

REPORT INFORMATION
  Report Type: 
  Country: None (occurrence: None)
  Receive Date: 20110510
  Receipt Date: 20110506
  Transmission Date: 20111010
  Serious: Yes (Other)
  Sender: FDA-Public Use
  Company Number: US-PFIZER INC-2011098123

PATIENT
  Sex: Female
  Weight: 83.9 kg

DRUGS (2)
  1. PRIMIDONE [Concomitant]
     Indication: PETIT MAL EPILEPSY
     Dosage: 250 MG, 2X/DAY
     Route: 048
  2. ZARONTIN [Suspect]
     Indication: PETIT MAL EPILEPSY
     Dosage: 250 MG, 2X/DAY
     Route: 048

REACTIONS (3)
  - SPINAL FRACTURE [None]
  - BODY HEIGHT DECREASED [None]
  - ROAD TRAFFIC ACCIDENT [None]
